FAERS Safety Report 25204275 (Version 1)
Quarter: 2025Q2

REPORT INFORMATION
  Report Type: Spontaneous
  Country: NO (occurrence: NO)
  Receive Date: 20250416
  Receipt Date: 20250416
  Transmission Date: 20250716
  Serious: Yes (Other)
  Sender: MYLAN
  Company Number: NO-BRISTOL-MYERS SQUIBB COMPANY-2025-048538

PATIENT
  Age: 75 Year
  Sex: Male

DRUGS (3)
  1. GEMCITABINE [Suspect]
     Active Substance: GEMCITABINE
     Indication: Transitional cell carcinoma
  2. CARBOPLATIN [Suspect]
     Active Substance: CARBOPLATIN
     Indication: Transitional cell carcinoma
  3. NIVOLUMAB [Suspect]
     Active Substance: NIVOLUMAB
     Indication: Transitional cell carcinoma

REACTIONS (4)
  - Bone marrow oedema [Unknown]
  - C-reactive protein increased [Unknown]
  - Pyrexia [Unknown]
  - Neutrophil count decreased [Unknown]
